FAERS Safety Report 24878154 (Version 2)
Quarter: 2025Q1

REPORT INFORMATION
  Report Type: Spontaneous
  Country: JP (occurrence: JP)
  Receive Date: 20250123
  Receipt Date: 20250221
  Transmission Date: 20250408
  Serious: No
  Sender: AMGEN
  Company Number: JP-KYOWAKIRIN-2025KK000767

PATIENT

DRUGS (1)
  1. PEGFILGRASTIM [Suspect]
     Active Substance: PEGFILGRASTIM
     Indication: Product used for unknown indication
     Route: 058

REACTIONS (1)
  - No adverse event [Unknown]
